FAERS Safety Report 11510550 (Version 1)
Quarter: 2015Q3

REPORT INFORMATION
  Report Type: Spontaneous
  Country: US (occurrence: US)
  Receive Date: 20150915
  Receipt Date: 20150915
  Transmission Date: 20151125
  Serious: No
  Sender: FDA-Public Use
  Company Number: US-JNJFOC-20150807057

PATIENT
  Age: 47 Year
  Sex: Female
  Weight: 55.79 kg

DRUGS (3)
  1. TYLENOL REGULAR STRENGTH [Suspect]
     Active Substance: ACETAMINOPHEN
     Indication: MUSCLE SPASMS
     Dosage: 1-2 TABLETS, EVERY 4-6 HOURS.
     Route: 048
  2. TYLENOL REGULAR STRENGTH [Suspect]
     Active Substance: ACETAMINOPHEN
     Indication: MYALGIA
     Dosage: 1-2 TABLETS, EVERY 4-6 HOURS.
     Route: 048
  3. VITAMIN D [Concomitant]
     Active Substance: CHOLECALCIFEROL
     Indication: VITAMIN SUPPLEMENTATION
     Dosage: DAILY
     Route: 065

REACTIONS (5)
  - Abdominal pain [Recovered/Resolved]
  - Muscle spasms [Recovered/Resolved]
  - Diarrhoea [Recovered/Resolved]
  - Product use issue [Recovered/Resolved]
  - Nausea [Recovered/Resolved]
